FAERS Safety Report 6085119-4 (Version None)
Quarter: 2009Q1

REPORT INFORMATION
  Report Type: 
  Country: None (occurrence: None)
  Receive Date: 20090220
  Receipt Date: 20090213
  Transmission Date: 20090719
  Serious: Yes (Other)
  Sender: FDA-Public Use
  Company Number: PHHY2009CA05433

PATIENT
  Sex: Male

DRUGS (10)
  1. LAMISIL [Suspect]
     Indication: TINEA PEDIS
     Dosage: 250MG PER DAY
     Route: 048
     Dates: start: 20080425, end: 20080501
  2. METFORMIN HCL [Concomitant]
     Indication: TYPE 2 DIABETES MELLITUS
     Dosage: 1000 MG, BID
     Dates: start: 20050101
  3. RIVOTRIL [Concomitant]
     Indication: DIABETIC NEUROPATHY
  4. NEXIUM [Concomitant]
     Indication: GASTROOESOPHAGEAL REFLUX DISEASE
     Dosage: 40MG
     Dates: start: 20050101
  5. AVAPRO [Concomitant]
     Dosage: 150MG PER DAY
     Dates: start: 20050101
  6. LIPITOR [Concomitant]
     Indication: BLOOD CHOLESTEROL INCREASED
  7. HYDROCHLOROTHIAZIDE [Concomitant]
     Indication: HYPERTENSION
     Dosage: 12.5MG
     Dates: start: 20050101
  8. SYNTHROID [Concomitant]
     Indication: HYPOTHYROIDISM
     Dosage: 0.112MG PER DAY
     Dates: start: 20050101
  9. NOVOPRANOL [Concomitant]
     Indication: ESSENTIAL TREMOR
     Dosage: 20 MG, TID
     Dates: start: 20050101
  10. VITAMIN B COMPLEX CAP [Concomitant]
     Indication: DIABETIC NEUROPATHY
     Dosage: UNK
     Dates: start: 20050101

REACTIONS (8)
  - AGEUSIA [None]
  - ANOSMIA [None]
  - DYSGEUSIA [None]
  - GLOSSODYNIA [None]
  - OEDEMA MOUTH [None]
  - ORAL PAIN [None]
  - TONGUE DISORDER [None]
  - TONGUE OEDEMA [None]
